FAERS Safety Report 4992821-1 (Version None)
Quarter: 2006Q2

REPORT INFORMATION
  Report Type: 
  Country: None (occurrence: None)
  Receive Date: 20060504
  Receipt Date: 20051019
  Transmission Date: 20061013
  Serious: Yes (Hospitalization)
  Sender: FDA-Public Use
  Company Number: US-MERCK-0510USA08008

PATIENT
  Age: 54 Year
  Sex: Male
  Weight: 82 kg

DRUGS (8)
  1. VIOXX [Suspect]
     Indication: BACK PAIN
     Route: 048
     Dates: start: 20030313, end: 20040805
  2. PRILOSEC [Concomitant]
     Route: 048
  3. VIAGRA [Concomitant]
     Route: 048
  4. PROPOXYPHENE HYDROCHLORIDE [Concomitant]
     Indication: PAIN
     Route: 065
  5. MOTRIN [Concomitant]
     Route: 065
  6. SEROQUEL [Concomitant]
     Indication: SLEEP DISORDER THERAPY
     Route: 065
  7. [THERAPY UNSPECIFIED] [Concomitant]
     Indication: CAECITIS
     Route: 065
  8. ASPIRIN [Concomitant]
     Route: 048

REACTIONS (6)
  - APHASIA [None]
  - APPENDICITIS [None]
  - CEREBROVASCULAR ACCIDENT [None]
  - HAEMOGLOBIN INCREASED [None]
  - HEMIPLEGIA [None]
  - TRANSIENT ISCHAEMIC ATTACK [None]
